FAERS Safety Report 4635390-8 (Version None)
Quarter: 2005Q2

REPORT INFORMATION
  Report Type: 
  Country: None (occurrence: None)
  Receive Date: 20050414
  Receipt Date: 20050404
  Transmission Date: 20051028
  Serious: Yes (Death, Hospitalization)
  Sender: FDA-Public Use
  Company Number: 2005055123

PATIENT
  Age: 86 Year
  Sex: Male
  Weight: 69 kg

DRUGS (6)
  1. QUINAPRIL HCL [Suspect]
     Indication: ILL-DEFINED DISORDER
     Dosage: 20 MG (20 MG, EVERY DAY), ORAL
     Route: 048
     Dates: end: 20041229
  2. METFORMIN HCL [Suspect]
     Indication: ILL-DEFINED DISORDER
     Dosage: 1000 MG (EVERY DAY), ORAL
     Route: 048
     Dates: end: 20041222
  3. CYPROTERONE ACETATE (CYPROTERONE ACETATE) [Suspect]
     Indication: ILL-DEFINED DISORDER
     Dosage: 3 DOSE FORM (EVERY DAY), ORAL
     Route: 048
     Dates: end: 20041224
  4. FUROSEMIDE [Suspect]
     Indication: ILL-DEFINED DISORDER
     Dosage: 60 MG (EVERY DAY), ORAL
     Route: 048
     Dates: end: 20041227
  5. POTASSIUM CHLORIDE [Suspect]
     Indication: ILL-DEFINED DISORDER
     Dosage: 600 MG (600 MG EVERY DAY), ORAL
     Route: 048
     Dates: end: 20041227
  6. ACETYLSALICYLIC ACID SRT [Suspect]
     Indication: ILL-DEFINED DISORDER
     Dosage: 160 MG (160 MG, EVERY DAY), ORAL
     Route: 048
     Dates: end: 20041231

REACTIONS (8)
  - COAGULOPATHY [None]
  - CONDITION AGGRAVATED [None]
  - DEPRESSED LEVEL OF CONSCIOUSNESS [None]
  - HEPATIC FAILURE [None]
  - HYPOALBUMINAEMIA [None]
  - OLIGURIA [None]
  - SINUS TACHYCARDIA [None]
  - VENTRICULAR EXTRASYSTOLES [None]
